FAERS Safety Report 6909313-2 (Version None)
Quarter: 2010Q3

REPORT INFORMATION
  Report Type: 
  Country: None (occurrence: None)
  Receive Date: 20100805
  Receipt Date: 20100727
  Transmission Date: 20110219
  Serious: Yes (Other)
  Sender: FDA-Public Use
  Company Number: PHHY2010CA49753

PATIENT
  Sex: Male

DRUGS (1)
  1. SANDOSTATIN [Suspect]
     Indication: CARCINOID SYNDROME
     Dosage: 100 UG, TID
     Route: 058
     Dates: start: 20100726

REACTIONS (3)
  - ABDOMINAL PAIN [None]
  - FLUSHING [None]
  - NEUROGENIC SHOCK [None]
